FAERS Safety Report 6436862-6 (Version None)
Quarter: 2009Q4

REPORT INFORMATION
  Report Type: 
  Country: None (occurrence: None)
  Receive Date: 20091111
  Receipt Date: 20091007
  Transmission Date: 20100525
  Serious: No
  Sender: FDA-Public Use
  Company Number: US-ALLERGAN-0913925US

PATIENT
  Age: 77 Year
  Sex: Female

DRUGS (5)
  1. SANCTURA XR [Suspect]
     Indication: BLADDER SPASM
     Dosage: 60 MG, QAM
     Route: 048
     Dates: start: 20090902
  2. THYROID MEDICATION [Concomitant]
  3. FEMALE HORMONE [Concomitant]
  4. PLAVIX [Concomitant]
  5. VITAMINS [Concomitant]

REACTIONS (2)
  - MUSCULOSKELETAL PAIN [None]
  - PAIN IN EXTREMITY [None]
